FAERS Safety Report 20311257 (Version 1)
Quarter: 2022Q1

REPORT INFORMATION
  Report Type: Spontaneous
  Country: CA (occurrence: CA)
  Receive Date: 20220107
  Receipt Date: 20220107
  Transmission Date: 20220423
  Serious: Yes (Hospitalization)
  Sender: FDA-Public Use
  Company Number: CA-TEVA-2021-CA-1996226

PATIENT
  Age: 17 Year
  Sex: Female
  Weight: 55 kg

DRUGS (16)
  1. PREDNISONE [Suspect]
     Active Substance: PREDNISONE
     Indication: Lymphoma
     Dosage: 100 MILLIGRAM DAILY; THERAPY DURATION:21.0 DAYS
     Route: 048
  2. ALLOPURINOL [Concomitant]
     Active Substance: ALLOPURINOL
  3. CALCIUM CARBONATE\CHOLECALCIFEROL [Concomitant]
     Active Substance: CALCIUM CARBONATE\CHOLECALCIFEROL
     Route: 065
  4. CYTARABINE [Concomitant]
     Active Substance: CYTARABINE
  5. DAUNORUBICIN [Concomitant]
     Active Substance: DAUNORUBICIN
  6. DEXAMETHASONE [Concomitant]
     Active Substance: DEXAMETHASONE
  7. ASPARAGINASE [Concomitant]
     Active Substance: ASPARAGINASE
  8. LANSOPRAZOLE [Concomitant]
     Active Substance: LANSOPRAZOLE
  9. LEVOFLOXACIN [Concomitant]
     Active Substance: LEVOFLOXACIN
  10. METHOTREXATE [Concomitant]
     Active Substance: METHOTREXATE
     Route: 039
  11. MYCAMINE [Concomitant]
     Active Substance: MICAFUNGIN SODIUM
  12. NORETHINDRONE [Concomitant]
     Active Substance: NORETHINDRONE
  13. ONCOVIN [Concomitant]
     Active Substance: VINCRISTINE SULFATE
  14. ONDANSETRON [Concomitant]
     Active Substance: ONDANSETRON
  15. POLYETHYLENE GLYCOL [Concomitant]
     Active Substance: POLYETHYLENE GLYCOL
  16. VALACYCLOVIR [Concomitant]
     Active Substance: VALACYCLOVIR HYDROCHLORIDE

REACTIONS (6)
  - Aggression [Recovered/Resolved]
  - Hypomania [Recovered/Resolved]
  - Insomnia [Recovered/Resolved]
  - Irritability [Recovered/Resolved]
  - Logorrhoea [Recovered/Resolved]
  - Tachyphrenia [Recovered/Resolved]
